FAERS Safety Report 8165121-9 (Version None)
Quarter: 2012Q1

REPORT INFORMATION
  Report Type: 
  Country: None (occurrence: None)
  Receive Date: 20120227
  Receipt Date: 20120221
  Transmission Date: 20120608
  Serious: No
  Sender: FDA-Public Use
  Company Number: US-PFIZER INC-2012046618

PATIENT
  Sex: Female

DRUGS (1)
  1. COVERA-HS [Suspect]
     Indication: LABILE HYPERTENSION
     Dosage: 180 MG, UNK

REACTIONS (3)
  - AURA [None]
  - FLUSHING [None]
  - EYE DISORDER [None]
